FAERS Safety Report 9933125 (Version 3)
Quarter: 2014Q1

REPORT INFORMATION
  Report Type: Spontaneous
  Country: US (occurrence: None)
  Receive Date: 20140226
  Receipt Date: 20140310
  Transmission Date: 20141002
  Serious: Yes (Hospitalization, Disabling, Other)
  Sender: FDA-Public Use
  Company Number: VAL_02996_2014

PATIENT
  Sex: Male

DRUGS (18)
  1. METOPROLOL [Suspect]
     Indication: PRODUCT USED FOR UNKNOWN INDICATION
     Dosage: DF
  2. METHYLPHENIDATE [Suspect]
     Indication: PRODUCT USED FOR UNKNOWN INDICATION
     Dosage: DF
  3. BACLOFEN [Suspect]
     Indication: PRODUCT USED FOR UNKNOWN INDICATION
     Route: 037
     Dates: start: 20110302, end: 20121008
  4. BUSPIRONE [Suspect]
     Indication: PRODUCT USED FOR UNKNOWN INDICATION
  5. FOSINOPRIL [Suspect]
     Indication: PRODUCT USED FOR UNKNOWN INDICATION
  6. ISOSORBIDE DINITRATE [Suspect]
     Indication: PRODUCT USED FOR UNKNOWN INDICATION
  7. TAMSULOSIN [Suspect]
     Indication: PRODUCT USED FOR UNKNOWN INDICATION
  8. COPAXONE [Suspect]
     Indication: MULTIPLE SCLEROSIS
     Dates: start: 20130421
  9. SINEMET [Suspect]
     Indication: PRODUCT USED FOR UNKNOWN INDICATION
  10. MORPHINE [Suspect]
     Indication: PRODUCT USED FOR UNKNOWN INDICATION
     Route: 037
  11. BUPIVACAINE [Suspect]
     Indication: PRODUCT USED FOR UNKNOWN INDICATION
     Route: 037
  12. PLAVIX [Suspect]
     Indication: PRODUCT USED FOR UNKNOWN INDICATION
  13. LASIX [Suspect]
     Indication: PRODUCT USED FOR UNKNOWN INDICATION
  14. NIASPAN [Suspect]
     Indication: PRODUCT USED FOR UNKNOWN INDICATION
  15. PROTONIX [Suspect]
     Indication: PRODUCT USED FOR UNKNOWN INDICATION
  16. SEROQUEL [Suspect]
     Indication: PRODUCT USED FOR UNKNOWN INDICATION
  17. RANEXA [Suspect]
     Indication: PRODUCT USED FOR UNKNOWN INDICATION
  18. LORTAB [Suspect]
     Indication: PRODUCT USED FOR UNKNOWN INDICATION

REACTIONS (14)
  - General physical health deterioration [None]
  - Asthenia [None]
  - Speech disorder [None]
  - Abasia [None]
  - Multiple sclerosis relapse [None]
  - Back pain [None]
  - Urinary retention [None]
  - Activities of daily living impaired [None]
  - Hypersomnia [None]
  - Depressed level of consciousness [None]
  - Pain [None]
  - Drug ineffective [None]
  - Therapeutic response decreased [None]
  - Pain [None]
